FAERS Safety Report 6058914-5 (Version None)
Quarter: 2009Q1

REPORT INFORMATION
  Report Type: 
  Country: None (occurrence: None)
  Receive Date: 20090130
  Receipt Date: 20090120
  Transmission Date: 20090719
  Serious: Yes (Life-Threatening, Disabling)
  Sender: FDA-Public Use
  Company Number: JP-PFIZER INC-2008152206

PATIENT
  Sex: Male
  Weight: 70 kg

DRUGS (13)
  1. ZITHROMAX [Suspect]
     Indication: NASOPHARYNGITIS
     Dosage: 500 MG, UNK
     Dates: start: 20081129, end: 20081201
  2. ZITHROMAX [Suspect]
     Indication: BRONCHITIS
  3. LYSOZYME HYDROCHLORIDE [Concomitant]
     Route: 048
     Dates: start: 20081129, end: 20081201
  4. IRSOGLADINE MALEATE [Concomitant]
     Route: 048
     Dates: start: 20081125, end: 20081201
  5. EPINASTINE [Concomitant]
     Route: 048
     Dates: start: 20081129, end: 20081201
  6. METHY F [Concomitant]
     Route: 048
     Dates: start: 20081129, end: 20081201
  7. HUSTAZOL [Concomitant]
     Route: 048
     Dates: start: 20081129, end: 20081201
  8. SISAAL [Concomitant]
     Route: 048
     Dates: start: 20081129, end: 20081201
  9. CEFZON [Concomitant]
     Dosage: UNK
     Dates: start: 20081125, end: 20081127
  10. PRANOPROFEN [Concomitant]
     Dosage: UNK
     Dates: start: 20081125, end: 20081127
  11. SERRAPEPTASE [Concomitant]
     Dosage: UNK
     Dates: start: 20081125, end: 20081127
  12. TRANSAMIN [Concomitant]
     Dosage: UNK
     Dates: start: 20081125, end: 20081127
  13. ALL OTHER THERAPEUTIC PRODUCTS [Concomitant]
     Dosage: UNK
     Dates: start: 20081125, end: 20081127

REACTIONS (1)
  - LOSS OF CONSCIOUSNESS [None]
